FAERS Safety Report 4266783-9 (Version None)
Quarter: 2004Q1

REPORT INFORMATION
  Report Type: 
  Country: None (occurrence: None)
  Receive Date: 20040108
  Receipt Date: 20030613
  Transmission Date: 20041129
  Serious: No
  Sender: FDA-Public Use
  Company Number: US-BRISTOL-MYERS SQUIBB COMPANY-12301404

PATIENT
  Sex: Female

DRUGS (2)
  1. CARDIOLITE [Suspect]
     Dates: start: 20030610
  2. CARDIAC MEDICATIONS [Concomitant]

REACTIONS (1)
  - RASH [None]
